FAERS Safety Report 21807120 (Version 2)
Quarter: 2023Q1

REPORT INFORMATION
  Report Type: Report from Study
  Country: US (occurrence: US)
  Receive Date: 20230102
  Receipt Date: 20230104
  Transmission Date: 20230418
  Serious: Yes (Life-Threatening, Hospitalization, Other)
  Sender: FDA-Public Use
  Company Number: US-JAZZ-2022-US-038614

PATIENT
  Age: 57 Year
  Sex: Female
  Weight: 95.4 kg

DRUGS (2)
  1. CYTARABINE\DAUNORUBICIN [Suspect]
     Active Substance: CYTARABINE\DAUNORUBICIN
     Indication: Acute myeloid leukaemia
     Dosage: 44 MILLIGRAM/SQ. METER D48H
     Route: 042
     Dates: start: 20221207, end: 20221211
  2. GLASDEGIB [Suspect]
     Active Substance: GLASDEGIB
     Indication: Acute myeloid leukaemia
     Dosage: 100 MILLIGRAM, QD
     Route: 048
     Dates: start: 20221212, end: 20221227

REACTIONS (7)
  - Acute respiratory failure [Unknown]
  - Tachycardia [Unknown]
  - Pneumonitis [Unknown]
  - Sepsis [Unknown]
  - Laryngeal haemorrhage [Unknown]
  - Acute kidney injury [Unknown]
  - Hypertransaminasaemia [Unknown]

NARRATIVE: CASE EVENT DATE: 20221227
